FAERS Safety Report 6772880-6 (Version None)
Quarter: 2010Q2

REPORT INFORMATION
  Report Type: 
  Country: None (occurrence: None)
  Receive Date: 20100616
  Receipt Date: 20100604
  Transmission Date: 20101027
  Serious: No
  Sender: FDA-Public Use
  Company Number: FR-ELI_LILLY_AND_COMPANY-FR201004004727

PATIENT
  Age: 52 Year
  Sex: Male
  Weight: 92 kg

DRUGS (1)
  1. CYMBALTA [Suspect]
     Indication: DEPRESSION
     Dosage: UNK, UNKNOWN
     Route: 048
     Dates: start: 20100320, end: 20100415

REACTIONS (4)
  - GASTRIC DISORDER [None]
  - HEPATIC STEATOSIS [None]
  - TRANSAMINASES INCREASED [None]
  - WEIGHT INCREASED [None]
